FAERS Safety Report 6654136-5 (Version None)
Quarter: 2010Q1

REPORT INFORMATION
  Report Type: 
  Country: None (occurrence: None)
  Receive Date: 20100324
  Receipt Date: 20100309
  Transmission Date: 20100710
  Serious: Yes (Hospitalization, Other)
  Sender: FDA-Public Use
  Company Number: 2010SCPR000409

PATIENT
  Age: 33 Year
  Sex: Male

DRUGS (2)
  1. RISPERIDONE [Suspect]
     Dosage: 2 MG, QD
  2. SERTRALINE HCL [Suspect]
     Dosage: 50MG,QD

REACTIONS (8)
  - BRONCHOALVEOLAR LAVAGE ABNORMAL [None]
  - LUNG CONSOLIDATION [None]
  - ORGANISING PNEUMONIA [None]
  - PNEUMOTHORAX [None]
  - PULMONARY EOSINOPHILIA [None]
  - PULMONARY FIBROSIS [None]
  - RED BLOOD CELL SEDIMENTATION RATE INCREASED [None]
  - RESPIRATORY FAILURE [None]
